FAERS Safety Report 8930447 (Version 1)
Quarter: 2012Q4

REPORT INFORMATION
  Report Type: Report from Study
  Country: DE (occurrence: DE)
  Receive Date: 20121128
  Receipt Date: 20121128
  Transmission Date: 20130627
  Serious: Yes (Life-Threatening, Hospitalization)
  Sender: FDA-Public Use
  Company Number: DE-ROCHE-1160118

PATIENT
  Age: 80 Year
  Sex: Male
  Weight: 73.8 kg

DRUGS (4)
  1. CAPECITABINE [Suspect]
     Indication: RECTAL CANCER
     Dosage: Last dose prior to SAE 10/Mar/2011. Therapy Withdrawn.
     Route: 048
     Dates: start: 20110307, end: 20110314
  2. OXALIPLATIN [Suspect]
     Indication: RECTAL CANCER
     Dosage: Last dose prior to SAE 07/Mar/2011. Therapy Withdrawn
     Route: 042
     Dates: start: 20110307, end: 20110314
  3. METOCLOPRAMIDE [Concomitant]
     Indication: ANTIBIOTIC PROPHYLAXIS
     Route: 048
     Dates: start: 20110307, end: 20110331
  4. METOCLOPRAMIDE [Concomitant]
     Indication: VOMITING

REACTIONS (3)
  - Gastroduodenitis [Recovered/Resolved]
  - Dehydration [Recovered/Resolved]
  - Blood creatinine increased [Recovered/Resolved]
